FAERS Safety Report 23773406 (Version 1)
Quarter: 2024Q2

REPORT INFORMATION
  Report Type: Spontaneous
  Country: US (occurrence: US)
  Receive Date: 20240423
  Receipt Date: 20240423
  Transmission Date: 20240716
  Serious: No
  Sender: FDA-Public Use
  Company Number: US-JNJFOC-20240445187

PATIENT
  Age: 40 Year
  Sex: Female

DRUGS (8)
  1. TREMFYA [Suspect]
     Active Substance: GUSELKUMAB
     Indication: Psoriasis
     Route: 058
     Dates: start: 20230319
  2. CLOBETASOL [Concomitant]
     Active Substance: CLOBETASOL
  3. TYLENOL [Concomitant]
     Active Substance: ACETAMINOPHEN
  4. VITAMINS [Concomitant]
     Active Substance: VITAMINS
  5. DESONIDE [Concomitant]
     Active Substance: DESONIDE
     Dosage: DESONIDE CRE 0.05%
  6. DOVONEX [Concomitant]
     Active Substance: CALCIPOTRIENE
  7. KETOCONAZOLE [Concomitant]
     Active Substance: KETOCONAZOLE
     Dosage: KETOCONAZOLE CRE 2%
  8. IBUPROFEN [Concomitant]
     Active Substance: IBUPROFEN

REACTIONS (2)
  - Psoriasis [Not Recovered/Not Resolved]
  - Infection [Unknown]
